FAERS Safety Report 24052197 (Version 1)
Quarter: 2024Q3

REPORT INFORMATION
  Report Type: Spontaneous
  Country: US (occurrence: US)
  Receive Date: 20240704
  Receipt Date: 20240704
  Transmission Date: 20241017
  Serious: Yes (Death, Hospitalization, Other)
  Sender: DR REDDYS
  Company Number: US-DRL-USA-LIT/USA/24/0009459

PATIENT
  Age: 57 Year
  Sex: Male

DRUGS (4)
  1. DOXYCYCLINE [Suspect]
     Active Substance: DOXYCYCLINE\DOXYCYCLINE HYCLATE
     Indication: Pneumonia legionella
  2. LEVOFLOXACIN [Suspect]
     Active Substance: LEVOFLOXACIN
     Indication: Pneumonia legionella
  3. MEROPENEM [Suspect]
     Active Substance: MEROPENEM
     Indication: Pneumonia legionella
  4. VANCOMYCIN [Suspect]
     Active Substance: VANCOMYCIN
     Indication: Pneumonia legionella

REACTIONS (10)
  - Acute respiratory distress syndrome [Fatal]
  - Condition aggravated [Fatal]
  - Acute kidney injury [Fatal]
  - Drug ineffective [Fatal]
  - Klebsiella infection [Fatal]
  - Acinetobacter infection [Fatal]
  - Leukopenia [Unknown]
  - Thrombocytopenia [Unknown]
  - Metabolic acidosis [Unknown]
  - Product use in unapproved indication [Unknown]
